FAERS Safety Report 12199724 (Version 2)
Quarter: 2016Q1

REPORT INFORMATION
  Report Type: Spontaneous
  Country: GB (occurrence: GB)
  Receive Date: 20160322
  Receipt Date: 20160328
  Transmission Date: 20160526
  Serious: Yes (Hospitalization, Other)
  Sender: FDA-Public Use
  Company Number: GB-WATSON-2016-05887

PATIENT
  Age: 17 Year
  Sex: Female
  Weight: 74.6 kg

DRUGS (4)
  1. ZAPONEX [Suspect]
     Active Substance: CLOZAPINE
     Indication: PRODUCT USED FOR UNKNOWN INDICATION
     Dosage: 425 MG, DAILY
     Route: 048
     Dates: start: 20150422
  2. CASANTHRANOL [Concomitant]
     Active Substance: CASANTHRANOL
     Indication: CONSTIPATION
     Dosage: 300 MG, DAILY
     Route: 048
     Dates: start: 20160206
  3. SERTRALINE [Concomitant]
     Active Substance: SERTRALINE HYDROCHLORIDE
     Indication: DEPRESSION
     Dosage: 200 MG, DAILY
     Route: 048
  4. MIRTAZAPINE (UNKNOWN) [Suspect]
     Active Substance: MIRTAZAPINE
     Indication: DEPRESSION
     Dosage: 15 MG, DAILY
     Route: 048
     Dates: start: 20160206

REACTIONS (5)
  - Urinary tract disorder [Unknown]
  - Influenza like illness [Unknown]
  - Mental impairment [Unknown]
  - Neutrophil count decreased [Recovered/Resolved]
  - Malaise [Unknown]

NARRATIVE: CASE EVENT DATE: 20160223
